FAERS Safety Report 11520865 (Version 2)
Quarter: 2015Q4

REPORT INFORMATION
  Report Type: Report from Study
  Country: DE (occurrence: DE)
  Receive Date: 20150918
  Receipt Date: 20151009
  Transmission Date: 20160304
  Serious: Yes (Hospitalization)
  Sender: FDA-Public Use
  Company Number: DE-BEH-2015053929

PATIENT
  Age: 80 Year
  Sex: Male
  Weight: 70 kg

DRUGS (3)
  1. PRIVIGEN [Suspect]
     Active Substance: HUMAN IMMUNOGLOBULIN G
     Indication: CHRONIC LYMPHOCYTIC LEUKAEMIA
     Dosage: INFUSION RATE: MIN. 0.8 ML/MIN, MAX. 6 ML/MIN
     Route: 042
     Dates: start: 20150602, end: 20150602
  2. PRIVIGEN [Suspect]
     Active Substance: HUMAN IMMUNOGLOBULIN G
     Indication: SECONDARY IMMUNODEFICIENCY
     Dosage: INFUSION RATE: MIN. 0.8 ML/MIN, MAX. 6 ML/MIN
     Route: 042
     Dates: start: 20150602, end: 20150602
  3. ACTRAPID [Concomitant]
     Active Substance: INSULIN HUMAN
     Indication: HYPERGLYCAEMIA
     Dosage: START DATE: ??-???-2015, STOP DATE: ??-???-2015 (DURING HOSPITALIZATION FOR BRONCHOPNEUMONIA)

REACTIONS (4)
  - Pneumonia [Recovered/Resolved]
  - Inflammatory marker increased [Recovered/Resolved]
  - Dyspnoea [Recovered/Resolved]
  - Pyrexia [Recovered/Resolved]

NARRATIVE: CASE EVENT DATE: 20150629
